FAERS Safety Report 9625478 (Version 2)
Quarter: 2014Q2

REPORT INFORMATION
  Report Type: Spontaneous
  Country: US (occurrence: US)
  Receive Date: 20131016
  Receipt Date: 20140605
  Transmission Date: 20141212
  Serious: Yes (Other)
  Sender: FDA-Public Use
  Company Number: US-PFIZER INC-2013294900

PATIENT
  Age: 60 Year
  Sex: Female

DRUGS (3)
  1. LIPITOR [Suspect]
     Indication: LOW DENSITY LIPOPROTEIN INCREASED
     Dosage: 10 MG, DAILY
     Route: 048
     Dates: start: 20020802, end: 200405
  2. LIPITOR [Suspect]
     Indication: CARDIOVASCULAR EVENT PROPHYLAXIS
     Dosage: 20 MG, DAILY
     Dates: start: 200405, end: 200503
  3. LIPITOR [Suspect]
     Dosage: 40 MG, DAILY
     Dates: start: 200503, end: 200804

REACTIONS (1)
  - Type 2 diabetes mellitus [Not Recovered/Not Resolved]
